FAERS Safety Report 20053306 (Version 1)
Quarter: 2021Q4

REPORT INFORMATION
  Report Type: Spontaneous
  Country: US (occurrence: None)
  Receive Date: 20211110
  Receipt Date: 20211110
  Transmission Date: 20220303
  Serious: Yes (Other)
  Sender: FDA-Public Use
  Company Number: 2021A801142

PATIENT
  Age: 58 Year
  Sex: Male

DRUGS (6)
  1. OLAPARIB [Suspect]
     Active Substance: OLAPARIB
     Route: 048
     Dates: start: 20200207, end: 202008
  2. ERLEADA [Concomitant]
     Active Substance: APALUTAMIDE
  3. CANNABIS SATIVA SUBSP. INDICA TOP [Concomitant]
     Active Substance: CANNABIS SATIVA SUBSP. INDICA TOP
  4. MOTRIN [Concomitant]
     Active Substance: IBUPROFEN
  5. PHOSPHA 250 NEUTRAL [Concomitant]
     Active Substance: POTASSIUM PHOSPHATE, MONOBASIC\SODIUM PHOSPHATE, DIBASIC, ANHYDROUS\SODIUM PHOSPHATE, MONOBASIC, MON
  6. DELTASONE [Concomitant]
     Active Substance: PREDNISONE

REACTIONS (2)
  - Prostatic specific antigen increased [Unknown]
  - Adverse drug reaction [Unknown]
